FAERS Safety Report 23257718 (Version 1)
Quarter: 2023Q4

REPORT INFORMATION
  Report Type: Spontaneous
  Country: US (occurrence: None)
  Receive Date: 20231204
  Receipt Date: 20231204
  Transmission Date: 20240109
  Serious: No
  Sender: FDA-Public Use
  Company Number: 2023A266080

PATIENT
  Age: 47 Year
  Sex: Female

DRUGS (7)
  1. TEZSPIRE [Suspect]
     Active Substance: TEZEPELUMAB-EKKO
     Indication: Ankylosing spondylitis
  2. ENBREL [Suspect]
     Active Substance: ETANERCEPT
     Indication: Ankylosing spondylitis
     Dates: start: 20231013
  3. AMINOPHENAZONE [Concomitant]
     Active Substance: AMINOPHENAZONE
  4. ATROPA BELLA-DONNA EXTRACT [Concomitant]
  5. CAFFEINE [Concomitant]
     Active Substance: CAFFEINE
  6. EPHEDRINE HYDROCHLORIDE [Concomitant]
     Active Substance: EPHEDRINE HYDROCHLORIDE
  7. THEOPHYLLINE [Concomitant]
     Active Substance: THEOPHYLLINE

REACTIONS (5)
  - COVID-19 [Unknown]
  - Asthma [Unknown]
  - Cough [Unknown]
  - Expired product administered [Unknown]
  - Emergency care [Unknown]
